FAERS Safety Report 8037256-2 (Version None)
Quarter: 2012Q1

REPORT INFORMATION
  Report Type: 
  Country: None (occurrence: None)
  Receive Date: 20120105
  Receipt Date: 20111227
  Transmission Date: 20120608
  Serious: Yes (Other)
  Sender: FDA-Public Use
  Company Number: 2011SP053798

PATIENT
  Age: 70 Year
  Sex: Female

DRUGS (13)
  1. MIRTAZAPINE [Suspect]
     Indication: DEPRESSION
     Dosage: 15 MG;QD;PO
     Route: 048
     Dates: start: 20111113, end: 20111114
  2. WARFARIN SODIUM [Concomitant]
  3. TRAMADOL HCL [Concomitant]
  4. FLURBIPROFEN [Concomitant]
  5. LAFUTIDINE [Concomitant]
  6. ALBUMIN (HUMAN) [Concomitant]
  7. FLOMOX [Concomitant]
  8. CEFAZOLIN SODIUM [Suspect]
     Indication: INFECTED NEOPLASM
     Dosage: 2 GM;QD;IV
     Route: 042
     Dates: start: 20111110, end: 20111113
  9. SOLCOSERYL [Concomitant]
  10. PILOCARPINE HYDROCHLORIDE [Concomitant]
  11. URSODIOL [Concomitant]
  12. FLURBIPROFEN [Concomitant]
  13. ITRACONAZOLE [Concomitant]

REACTIONS (6)
  - PRURITUS [None]
  - DRUG ERUPTION [None]
  - SEPSIS [None]
  - ECZEMA [None]
  - PANCYTOPENIA [None]
  - EXCORIATION [None]
